FAERS Safety Report 16585621 (Version 5)
Quarter: 2022Q2

REPORT INFORMATION
  Report Type: Spontaneous
  Country: US (occurrence: US)
  Receive Date: 20190717
  Receipt Date: 20220429
  Transmission Date: 20220720
  Serious: Yes (Death, Other)
  Sender: FDA-Public Use
  Company Number: US-TAKEDA-2019TUS037572

PATIENT

DRUGS (8)
  1. PANTOPRAZOLE [Suspect]
     Active Substance: PANTOPRAZOLE
     Indication: Gastrooesophageal reflux disease
     Dosage: 40 MILLIGRAM, QD
     Route: 048
     Dates: start: 2016
  2. PREVACID [Suspect]
     Active Substance: LANSOPRAZOLE
     Indication: Product used for unknown indication
     Dosage: UNK
     Route: 048
  3. PREVACID 24 HR [Suspect]
     Active Substance: LANSOPRAZOLE
     Indication: Gastrooesophageal reflux disease
     Dosage: UNK, QD
     Route: 048
     Dates: start: 2007, end: 2016
  4. PREDNISONE [Concomitant]
     Active Substance: PREDNISONE
     Indication: Infection
     Dosage: UNK
     Dates: start: 2016
  5. CHOLECALCIFEROL [Concomitant]
     Active Substance: CHOLECALCIFEROL
     Indication: Vitamin D
     Dosage: UNK
     Dates: start: 2016
  6. SEVELAMER [Concomitant]
     Active Substance: SEVELAMER
     Indication: Renal disorder
     Dosage: UNK
     Dates: start: 2016
  7. ALBUTEROL [Concomitant]
     Active Substance: ALBUTEROL
     Dosage: UNK
     Dates: start: 2016
  8. AMLODIPINE BESYLATE\BENAZEPRIL HYDROCHLORIDE [Concomitant]
     Active Substance: AMLODIPINE BESYLATE\BENAZEPRIL HYDROCHLORIDE
     Indication: Blood pressure abnormal
     Dosage: UNK
     Dates: start: 2016

REACTIONS (3)
  - Renal failure [Fatal]
  - End stage renal disease [Fatal]
  - Septic shock [Fatal]

NARRATIVE: CASE EVENT DATE: 20160101
